FAERS Safety Report 8559746-6 (Version None)
Quarter: 2012Q3

REPORT INFORMATION
  Report Type: 
  Country: None (occurrence: None)
  Receive Date: 20120802
  Receipt Date: 20120731
  Transmission Date: 20120928
  Serious: No
  Sender: FDA-Public Use
  Company Number: US-PFIZER INC-2012127253

PATIENT
  Sex: Female
  Weight: 109 kg

DRUGS (20)
  1. METOPROLOL [Concomitant]
     Dosage: 50 MG, 5X/DAY
     Route: 048
  2. NEXIUM [Concomitant]
     Dosage: 40 MG, 1X/DAY
  3. SANCTURA XR [Concomitant]
     Dosage: 60 MG, 1X/DAY
  4. LUTEIN [Concomitant]
     Indication: MACULAR DEGENERATION
     Dosage: 20 MG, 1X/DAY
  5. CYMBALTA [Concomitant]
     Dosage: 60 MG, 1X/DAY
     Route: 048
  6. LYRICA [Suspect]
     Indication: OSTEOARTHRITIS
     Dosage: 50 MG, 1X/DAY
     Route: 048
  7. ACETYLSALICYLIC ACID [Concomitant]
     Dosage: 81 MG, 1X/DAY
  8. METFORMIN [Concomitant]
     Dosage: 500 MG, 2X/DAY
     Route: 048
  9. SIMCOR [Concomitant]
     Dosage: UNK, 1X/DAY
  10. DIGOXIN [Concomitant]
     Dosage: 0.125 MG, 1X/DAY
  11. KLOR-CON [Concomitant]
     Dosage: UNK, 1X/DAY
  12. LYRICA [Suspect]
     Indication: NEUROPATHY PERIPHERAL
     Dosage: 100 MG, 3X/DAY
     Route: 048
     Dates: start: 20120201, end: 20120501
  13. LEVOXYL [Concomitant]
     Dosage: 100 UG, 1X/DAY
  14. LOVAZA [Concomitant]
     Dosage: 1 G, 4X/DAY
  15. FUROSEMIDE [Concomitant]
     Dosage: 20 MG, 1X/DAY
  16. BUMEX [Concomitant]
     Dosage: 1 MG, 1X/DAY
  17. LYRICA [Suspect]
     Dosage: UNK
     Dates: start: 20120521
  18. PRADAXA [Concomitant]
     Dosage: 150 MG, 2X/DAY
  19. TRILIPIX [Concomitant]
     Dosage: 135 MG, 1X/DAY
  20. TIAZAC [Concomitant]
     Dosage: 300 MG, 1X/DAY

REACTIONS (4)
  - WITHDRAWAL SYNDROME [None]
  - HEADACHE [None]
  - BACK PAIN [None]
  - NAUSEA [None]
